FAERS Safety Report 21452753 (Version 2)
Quarter: 2025Q4

REPORT INFORMATION
  Report Type: Spontaneous
  Country: EU (occurrence: EU)
  Receive Date: 20221013
  Receipt Date: 20251013
  Transmission Date: 20260117
  Serious: Yes (Hospitalization, Other)
  Sender: ROCHE
  Company Number: EU-VELOXIS PHARMACEUTICALS-2022VELPL-000696

PATIENT
  Age: 21 Year
  Sex: Female

DRUGS (3)
  1. MYCOPHENOLATE MOFETIL [Suspect]
     Active Substance: MYCOPHENOLATE MOFETIL
     Indication: Prophylaxis against transplant rejection
     Dosage: 500 MILLIGRAM, BID
     Route: 048
  2. PREDNISONE [Suspect]
     Active Substance: PREDNISONE
     Indication: Prophylaxis against transplant rejection
     Dosage: 15 MILLIGRAM, QD
     Route: 065
  3. TACROLIMUS [Suspect]
     Active Substance: TACROLIMUS
     Indication: Prophylaxis against transplant rejection
     Route: 065

REACTIONS (28)
  - Neutrophilia [Unknown]
  - Leukocytosis [Unknown]
  - Antibody test positive [Unknown]
  - Blood magnesium decreased [Unknown]
  - Catatonia [Recovered/Resolved]
  - Aggression [Recovered/Resolved]
  - Agitation [Recovered/Resolved]
  - Persecutory delusion [Recovered/Resolved]
  - Unresponsive to stimuli [Recovered/Resolved]
  - Distractibility [Recovered/Resolved]
  - Echolalia [Recovered/Resolved]
  - Echopraxia [Recovered/Resolved]
  - Hyperreflexia [Recovered/Resolved]
  - Inappropriate affect [Recovered/Resolved]
  - Loose associations [Recovered/Resolved]
  - Hypertonia [Recovered/Resolved]
  - Mutism [Recovered/Resolved]
  - Lack of spontaneous speech [Recovered/Resolved]
  - Disorientation [Recovered/Resolved]
  - Posturing [Recovered/Resolved]
  - Muscle rigidity [Recovered/Resolved]
  - Negativism [Recovered/Resolved]
  - Hypokinesia [Recovered/Resolved]
  - Staring [Recovered/Resolved]
  - Stupor [Recovered/Resolved]
  - Neurotoxicity [Unknown]
  - Hallucination, auditory [Recovered/Resolved]
  - Social avoidant behaviour [Recovered/Resolved]
